FAERS Safety Report 23561452 (Version 3)
Quarter: 2024Q2

REPORT INFORMATION
  Report Type: Spontaneous
  Country: US (occurrence: None)
  Receive Date: 20240224
  Receipt Date: 20240601
  Transmission Date: 20240716
  Serious: No
  Sender: FDA-Public Use
  Company Number: 2024A041978

PATIENT
  Sex: Female

DRUGS (2)
  1. BYDUREON BCISE [Suspect]
     Active Substance: EXENATIDE
     Route: 058
  2. METFORMIN [Suspect]
     Active Substance: METFORMIN HYDROCHLORIDE

REACTIONS (5)
  - Laboratory test abnormal [Unknown]
  - Illness [Unknown]
  - Product dose omission issue [Unknown]
  - Device malfunction [Unknown]
  - Wrong technique in device usage process [Unknown]
